FAERS Safety Report 8400616-1 (Version None)
Quarter: 2012Q2

REPORT INFORMATION
  Report Type: 
  Country: None (occurrence: None)
  Receive Date: 20120531
  Receipt Date: 20120525
  Transmission Date: 20120825
  Serious: Yes (Hospitalization, Congenital Anomaly, Other)
  Sender: FDA-Public Use
  Company Number: US-PFIZER INC-2012127087

PATIENT
  Sex: Female
  Weight: 3.24 kg

DRUGS (26)
  1. ZOLOFT [Suspect]
     Dosage: 50 MG, 2X/DAY
     Route: 064
     Dates: start: 20061205
  2. GYNAZOLE [Concomitant]
     Indication: VULVOVAGINITIS
     Dosage: UNK
     Route: 064
     Dates: start: 20061107
  3. CELEXA [Concomitant]
     Dosage: 20 MG TABLETS 1 AND HALF TABLETS EVERY OTHER DAY
     Route: 064
     Dates: end: 20060515
  4. UNITHROID [Concomitant]
     Dosage: 100MCG TABLET EVERY DAY
     Route: 064
  5. MYCOLOG [Concomitant]
     Indication: VULVOVAGINITIS
     Dosage: UNK
     Route: 064
     Dates: start: 20061107
  6. ZOLOFT [Suspect]
     Indication: DEPRESSION
     Dosage: 50 MG, 1X/DAY
     Route: 064
     Dates: start: 20060510
  7. AMARYL [Concomitant]
     Dosage: 4 MG TABLET EVERY MORNING
     Route: 064
  8. ACTOS [Concomitant]
     Dosage: 45MG TABLET EVERY DAY
     Route: 064
  9. LANTUS [Concomitant]
     Dosage: 54 UNITS EVERY NIGHT
     Route: 064
     Dates: start: 20060515, end: 20060625
  10. HUMALOG [Concomitant]
     Dosage: 10 UNITS THREE TIMES A DAY WITH MEALS
     Route: 064
     Dates: end: 20060514
  11. FLOVENT [Concomitant]
     Indication: ASTHMA
     Dosage: 1 PUFF TWICE A DAY
     Route: 064
     Dates: start: 20061019
  12. AMPICILLIN [Concomitant]
     Dosage: UNK
     Route: 064
  13. LANTUS [Concomitant]
     Dosage: 64 UNITS DAILY
     Route: 064
     Dates: start: 20061019
  14. ZOLOFT [Suspect]
     Dosage: 100 MG, 1X/DAY
     Route: 064
     Dates: start: 20061010
  15. ZOLOFT [Suspect]
     Dosage: 100MG DAILY
     Route: 064
     Dates: start: 20070524
  16. LISINOPRIL [Concomitant]
     Indication: HYPERTENSION
     Dosage: 40MG  TABLET EVERY DAY
     Route: 064
  17. LANTUS [Concomitant]
     Dosage: 45 UNITS EVERY NIGHT
     Route: 064
     Dates: end: 20060514
  18. LANTUS [Concomitant]
     Dosage: 60 UNITS
     Route: 064
     Dates: start: 20060626, end: 20061018
  19. ALBUTEROL [Concomitant]
     Indication: COUGH
     Dosage: 90 MCG INHALER 2-3 TIMES PER DAY
     Route: 064
  20. SERTRALINE HYDROCHLORIDE [Concomitant]
     Indication: DEPRESSION
     Dosage: 50MG TABLET
     Route: 064
     Dates: start: 20060921
  21. HUMALOG [Concomitant]
     Dosage: 16 UNITS THREE TIMES A DAY WITH MEALS
     Route: 064
     Dates: start: 20060515, end: 20060625
  22. MULTI-VITAMINS [Concomitant]
     Dosage: DAILY
     Route: 064
  23. XANAX [Concomitant]
     Dosage: 0.5 MG, 3X/DAY
     Route: 064
     Dates: end: 20060515
  24. HUMALOG [Concomitant]
     Dosage: 20 UNITS THREE TIMES A DAY WITH MEALS
     Route: 064
     Dates: start: 20060626
  25. SYNTHROID [Concomitant]
     Dosage: 100 UG, UNK
     Route: 064
  26. MAGNESIUM [Concomitant]
     Indication: CONVULSION PROPHYLAXIS
     Dosage: UNK
     Route: 064

REACTIONS (12)
  - HYPERBILIRUBINAEMIA [None]
  - DYSMORPHISM [None]
  - PULMONARY ARTERY STENOSIS CONGENITAL [None]
  - FAILURE TO THRIVE [None]
  - PATENT DUCTUS ARTERIOSUS [None]
  - ATRIAL SEPTAL DEFECT [None]
  - CARDIOMEGALY [None]
  - CARDIAC FAILURE CONGESTIVE [None]
  - NEONATAL TACHYPNOEA [None]
  - MATERNAL EXPOSURE DURING PREGNANCY [None]
  - VENTRICULAR SEPTAL DEFECT [None]
  - RESPIRATORY DISTRESS [None]
